FAERS Safety Report 8621273 (Version 2)
Quarter: 2012Q4

REPORT INFORMATION
  Report Type: 
  Country: FR (occurrence: FR)
  Receive Date: 20120619
  Receipt Date: 20121030
  Transmission Date: 20130627
  Serious: No
  Sender: FDA-Public Use
  Company Number: FR-COVIDIEN/TYCO HEALTHCARE/MALLINCKRODT-T201202578

PATIENT
  Age: 51 Year
  Sex: Female

DRUGS (1)
  1. IOVERSOL [Suspect]
     Indication: SCAN BRAIN
     Dosage: UNK
     Route: 065
     Dates: start: 201206, end: 201206

REACTIONS (1)
  - Type I hypersensitivity [Unknown]
